FAERS Safety Report 11919856 (Version 1)
Quarter: 2016Q1

REPORT INFORMATION
  Report Type: Spontaneous
  Country: US (occurrence: None)
  Receive Date: 20160114
  Receipt Date: 20160114
  Transmission Date: 20160526
  Serious: Yes (Hospitalization)
  Sender: FDA-Public Use
  Company Number: None

PATIENT
  Age: 29 Year
  Sex: Male
  Weight: 95.26 kg

DRUGS (4)
  1. PROTONIX [Suspect]
     Active Substance: PANTOPRAZOLE SODIUM
     Indication: GASTRIC POLYPS
     Route: 048
     Dates: start: 20151023, end: 20151218
  2. METOPROLOL ER [Suspect]
     Active Substance: METOPROLOL SUCCINATE
     Indication: HEART RATE IRREGULAR
     Dosage: 1/2 PILL TWICE DAILY TAKEN BY MOUTH
     Route: 048
     Dates: start: 20051101, end: 20160113
  3. PAXIL [Concomitant]
     Active Substance: PAROXETINE HYDROCHLORIDE
  4. PROTONIX [Suspect]
     Active Substance: PANTOPRAZOLE SODIUM
     Indication: GASTROOESOPHAGEAL REFLUX DISEASE
     Route: 048
     Dates: start: 20151023, end: 20151218

REACTIONS (4)
  - Fatigue [None]
  - Drug interaction [None]
  - Sluggishness [None]
  - Heart rate decreased [None]

NARRATIVE: CASE EVENT DATE: 20151210
